FAERS Safety Report 5452941-4 (Version None)
Quarter: 2007Q3

REPORT INFORMATION
  Report Type: 
  Country: None (occurrence: None)
  Receive Date: 20070914
  Receipt Date: 20070907
  Transmission Date: 20080115
  Serious: Yes (Hospitalization)
  Sender: FDA-Public Use
  Company Number: US-AMGEN-QUU242163

PATIENT
  Sex: Female

DRUGS (1)
  1. ENBREL [Suspect]
     Indication: RHEUMATOID ARTHRITIS
     Route: 058
     Dates: start: 20020102, end: 20070701

REACTIONS (4)
  - AORTIC THROMBOSIS [None]
  - ARTHRITIS [None]
  - BRONCHITIS [None]
  - VISION BLURRED [None]
